FAERS Safety Report 6688123-8 (Version None)
Quarter: 2010Q2

REPORT INFORMATION
  Report Type: 
  Country: None (occurrence: None)
  Receive Date: 20100420
  Receipt Date: 20100408
  Transmission Date: 20101027
  Serious: Yes (Other)
  Sender: FDA-Public Use
  Company Number: GB-PFIZER INC-2010023061

PATIENT
  Age: 44 Year
  Sex: Female
  Weight: 60 kg

DRUGS (7)
  1. MARAVIROC [Suspect]
     Indication: HIV INFECTION
     Route: 048
  2. PREZISTA [Suspect]
     Indication: HIV INFECTION
     Dosage: 600 MG, 2X/DAY
     Route: 048
     Dates: start: 20080101
  3. ETRAVIRINE [Suspect]
     Indication: HIV INFECTION
     Dosage: 200 MG, 2X/DAY
     Route: 048
     Dates: start: 20080101
  4. LAMIVUDINE [Suspect]
     Indication: HIV INFECTION
  5. RALTEGRAVIR [Suspect]
     Indication: HIV INFECTION
     Route: 048
  6. RITONAVIR [Suspect]
     Indication: HIV INFECTION
  7. TENOFOVIR [Suspect]
     Indication: HIV INFECTION
     Route: 048

REACTIONS (3)
  - HYPERLIPIDAEMIA [None]
  - PROTEINURIA [None]
  - TYPE 2 DIABETES MELLITUS [None]
